FAERS Safety Report 6704592-9 (Version None)
Quarter: 2010Q2

REPORT INFORMATION
  Report Type: 
  Country: None (occurrence: None)
  Receive Date: 20100430
  Receipt Date: 20100419
  Transmission Date: 20101027
  Serious: Yes (Other)
  Sender: FDA-Public Use
  Company Number: PHHY2010FR13984

PATIENT
  Sex: Male
  Weight: 90 kg

DRUGS (3)
  1. AFINITOR [Suspect]
     Indication: RENAL CELL CARCINOMA
     Dosage: 10 MG/DAY
     Dates: start: 20100215, end: 20100301
  2. CASODEX [Concomitant]
     Indication: PROSTATIC DISORDER
     Dosage: 1 DF, UNK
     Route: 048
  3. PRAVASTATIN [Concomitant]

REACTIONS (7)
  - ACNE [None]
  - ARTHRALGIA [None]
  - FACE OEDEMA [None]
  - FOLLICULITIS [None]
  - GAIT DISTURBANCE [None]
  - OEDEMA PERIPHERAL [None]
  - SKIN BURNING SENSATION [None]
